FAERS Safety Report 12880537 (Version 2)
Quarter: 2016Q4

REPORT INFORMATION
  Report Type: Spontaneous
  Country: JP (occurrence: JP)
  Receive Date: 20161025
  Receipt Date: 20161101
  Transmission Date: 20170207
  Serious: Yes (Hospitalization, Other)
  Sender: FDA-Public Use
  Company Number: JP-VIIV HEALTHCARE LIMITED-JP2016JPN152299

PATIENT
  Age: 46 Year
  Sex: Male

DRUGS (2)
  1. ZEFIX [Suspect]
     Active Substance: LAMIVUDINE
     Indication: HEPATITIS B
     Dosage: UNK
     Route: 048
  2. HEPSERA [Suspect]
     Active Substance: ADEFOVIR DIPIVOXIL
     Indication: HEPATITIS B
     Dosage: UNK
     Route: 048

REACTIONS (8)
  - Fanconi syndrome acquired [Recovering/Resolving]
  - Bone pain [Recovering/Resolving]
  - Hypophosphataemia [Recovering/Resolving]
  - Metabolic acidosis [Unknown]
  - Hyperphosphatasaemia [Unknown]
  - Osteomalacia [Recovering/Resolving]
  - Rib fracture [Unknown]
  - Hypouricaemia [Unknown]
